FAERS Safety Report 19991454 (Version 1)
Quarter: 2021Q4

REPORT INFORMATION
  Report Type: Spontaneous
  Country: IT (occurrence: IT)
  Receive Date: 20211025
  Receipt Date: 20211025
  Transmission Date: 20220303
  Serious: Yes (Other)
  Sender: FDA-Public Use
  Company Number: IT-MYLANLABS-2021M1074389

PATIENT
  Age: 64 Year
  Sex: Male

DRUGS (3)
  1. LEVETIRACETAM [Suspect]
     Active Substance: LEVETIRACETAM
     Indication: Encephalitis autoimmune
     Dosage: UNK
     Route: 042
  2. VALPROATE [Suspect]
     Active Substance: VALPROIC ACID
     Indication: Encephalitis autoimmune
     Dosage: UNK
     Route: 042
  3. LACOSAMIDE [Suspect]
     Active Substance: LACOSAMIDE
     Indication: Encephalitis autoimmune
     Dosage: UNK
     Route: 042

REACTIONS (1)
  - Drug ineffective [Unknown]
